FAERS Safety Report 5153498-8 (Version None)
Quarter: 2006Q4

REPORT INFORMATION
  Report Type: 
  Country: None (occurrence: None)
  Receive Date: 20061117
  Receipt Date: 20061107
  Transmission Date: 20070319
  Serious: Yes (Disabling)
  Sender: FDA-Public Use
  Company Number: JP-ABBOTT-06P-087-0349596-00

PATIENT
  Sex: Female

DRUGS (10)
  1. AKINETON [Suspect]
     Indication: PARKINSONISM
     Route: 048
     Dates: start: 20040702, end: 20040705
  2. AKINETON [Suspect]
     Route: 030
     Dates: start: 20040702, end: 20040703
  3. HALOPERIDOL [Suspect]
     Indication: MANIA
     Route: 048
     Dates: start: 20040702, end: 20040705
  4. HALOPERIDOL [Suspect]
     Route: 030
     Dates: start: 20040702, end: 20040703
  5. FLUNITRAZEPAM [Suspect]
     Indication: INSOMNIA
     Route: 048
     Dates: start: 20040702, end: 20040716
  6. LITHIUM CARBONATE [Suspect]
     Indication: MANIA
     Route: 048
     Dates: start: 20040713, end: 20040714
  7. LITHIUM CARBONATE [Suspect]
     Route: 048
     Dates: start: 20040715, end: 20040716
  8. NITRAZEPAM [Concomitant]
     Indication: INSOMNIA
     Route: 048
     Dates: start: 20040707, end: 20040707
  9. PL [Concomitant]
     Indication: NASOPHARYNGITIS
     Route: 048
     Dates: start: 20040705, end: 20040705
  10. SPARFLOXACIN [Concomitant]
     Indication: SYSTEMIC ANTIBACTERIAL THERAPY
     Route: 048
     Dates: start: 20040705, end: 20040705

REACTIONS (8)
  - AGITATION [None]
  - BIPOLAR I DISORDER [None]
  - DYSPHAGIA [None]
  - HYPERHIDROSIS [None]
  - MUSCULOSKELETAL DISORDER [None]
  - NEUROLEPTIC MALIGNANT SYNDROME [None]
  - RESTLESSNESS [None]
  - TREMOR [None]
